FAERS Safety Report 6292115-0 (Version None)
Quarter: 2009Q3

REPORT INFORMATION
  Report Type: 
  Country: None (occurrence: None)
  Receive Date: 20090731
  Receipt Date: 20090723
  Transmission Date: 20100115
  Serious: Yes (Other)
  Sender: FDA-Public Use
  Company Number: NZ-BRISTOL-MYERS SQUIBB COMPANY-14715155

PATIENT
  Age: 67 Year
  Sex: Male

DRUGS (2)
  1. MITOMYCIN [Suspect]
     Indication: SQUAMOUS CELL CARCINOMA
     Dosage: ROUTE OF ADMINISTRATION-IJ, MITOMYCIN INJECTION
  2. FLUOROURACIL [Suspect]
     Indication: SQUAMOUS CELL CARCINOMA
     Dosage: ROUTE OF ADMIN-IJ, 5-FU INJECTION 250 KYOWA

REACTIONS (1)
  - OSTEONECROSIS [None]
